FAERS Safety Report 6968712-3 (Version None)
Quarter: 2010Q3

REPORT INFORMATION
  Report Type: 
  Country: None (occurrence: None)
  Receive Date: 20100907
  Receipt Date: 20100825
  Transmission Date: 20110219
  Serious: Yes (Hospitalization)
  Sender: FDA-Public Use
  Company Number: AU-JNJFOC-20100900063

PATIENT
  Age: 5 Decade
  Sex: Female

DRUGS (2)
  1. DURAGESIC-100 [Suspect]
     Indication: BACK PAIN
     Route: 065
  2. ANTIDEPRESSANTS [Concomitant]
     Indication: PRODUCT USED FOR UNKNOWN INDICATION
     Route: 065

REACTIONS (5)
  - ADVERSE EVENT [None]
  - DEPRESSED LEVEL OF CONSCIOUSNESS [None]
  - OFF LABEL USE [None]
  - OVERDOSE [None]
  - SOMNOLENCE [None]
